FAERS Safety Report 18066244 (Version 4)
Quarter: 2020Q4

REPORT INFORMATION
  Report Type: Spontaneous
  Country: JP (occurrence: JP)
  Receive Date: 20200724
  Receipt Date: 20201006
  Transmission Date: 20210113
  Serious: Yes (Hospitalization, Other)
  Sender: FDA-Public Use
  Company Number: JP-ASTRAZENECA-2020SE91837

PATIENT
  Age: 29649 Day
  Sex: Male
  Weight: 59 kg

DRUGS (18)
  1. ARTIST [Concomitant]
     Active Substance: CARVEDILOL
     Indication: CARDIAC FAILURE CHRONIC
     Route: 048
  2. MEVALOTIN [Concomitant]
     Active Substance: PRAVASTATIN SODIUM
     Indication: HYPERCHOLESTEROLAEMIA
     Route: 048
     Dates: start: 20200416
  3. REMITCH OD [Concomitant]
     Indication: PRURITUS
     Route: 048
     Dates: start: 20171226
  4. PAXIL CR [Concomitant]
     Active Substance: PAROXETINE HYDROCHLORIDE
     Indication: DEPRESSION
     Route: 048
     Dates: start: 20180927
  5. LENDORMIN D [Concomitant]
     Active Substance: BROTIZOLAM
     Indication: INSOMNIA
     Route: 048
     Dates: start: 20180927
  6. BELSOMRA [Concomitant]
     Active Substance: SUVOREXANT
     Indication: INSOMNIA
     Route: 048
     Dates: start: 20180904
  7. NEXIUM [Concomitant]
     Active Substance: ESOMEPRAZOLE MAGNESIUM
     Indication: PROPHYLAXIS AGAINST GASTROINTESTINAL ULCER
     Route: 048
     Dates: start: 20180918
  8. SUREPOST [Concomitant]
     Active Substance: REPAGLINIDE
     Indication: TYPE 2 DIABETES MELLITUS
     Route: 048
     Dates: start: 20200114
  9. NAIXAN [Concomitant]
     Active Substance: NAPROXEN SODIUM
     Indication: PLEURISY
     Route: 048
     Dates: start: 20200127
  10. TENELIA [Concomitant]
     Active Substance: TENELIGLIPTIN
     Indication: TYPE 2 DIABETES MELLITUS
     Route: 048
     Dates: start: 20190808
  11. COLIOPAN [Concomitant]
     Active Substance: BUTROPIUM BROMIDE
     Indication: IRRITABLE BOWEL SYNDROME
     Route: 048
     Dates: start: 20200513
  12. LOKELMA [Suspect]
     Active Substance: SODIUM ZIRCONIUM CYCLOSILICATE
     Indication: HYPERKALAEMIA
     Dosage: 5 G EVERY DAY ON NON-DIALYSIS DAYS
     Route: 048
     Dates: start: 20200611, end: 20200716
  13. BAYASPIRIN [Concomitant]
     Active Substance: ASPIRIN
     Indication: CEREBRAL INFARCTION
     Route: 048
  14. COLONEL [Concomitant]
     Active Substance: CALCIUM POLYCARBOPHIL
     Indication: IRRITABLE BOWEL SYNDROME
     Route: 048
     Dates: start: 20200611, end: 20200720
  15. EVRENZO [Suspect]
     Active Substance: ROXADUSTAT
     Indication: CHRONIC KIDNEY DISEASE
     Dosage: 100 MG EVERY DAY ON ON DIALYSIS DAYS
     Route: 048
     Dates: start: 20200709, end: 20200716
  16. THYRADIN-S [Concomitant]
     Active Substance: LEVOTHYROXINE
     Indication: HYPOTHYROIDISM
     Route: 048
     Dates: start: 201705
  17. PLAVIX [Concomitant]
     Active Substance: CLOPIDOGREL BISULFATE
     Indication: ANGINA PECTORIS
     Route: 048
     Dates: start: 20191024
  18. MUCOSTA [Concomitant]
     Active Substance: REBAMIPIDE
     Indication: GASTRITIS
     Route: 048
     Dates: start: 20200127

REACTIONS (3)
  - Blood glucose increased [Recovering/Resolving]
  - Bronchitis [Recovering/Resolving]
  - Cholangitis acute [Not Recovered/Not Resolved]

NARRATIVE: CASE EVENT DATE: 20200704
